FAERS Safety Report 7232574-X (Version None)
Quarter: 2011Q1

REPORT INFORMATION
  Report Type: 
  Country: None (occurrence: None)
  Receive Date: 20110107
  Receipt Date: 20101227
  Transmission Date: 20110831
  Serious: Yes (Hospitalization)
  Sender: FDA-Public Use
  Company Number: IDA-00476

PATIENT
  Age: 67 Year
  Sex: Female

DRUGS (1)
  1. INDERAL [Suspect]
     Dosage: 40 MG DAILY ORAL FORMULATION: TABLET
     Route: 048
     Dates: start: 20101001, end: 20101019

REACTIONS (1)
  - SYNCOPE [None]
